FAERS Safety Report 8139765-4 (Version None)
Quarter: 2012Q1

REPORT INFORMATION
  Report Type: 
  Country: None (occurrence: None)
  Receive Date: 20120215
  Receipt Date: 20120201
  Transmission Date: 20120608
  Serious: Yes (Hospitalization)
  Sender: FDA-Public Use
  Company Number: DE-GENZYME-CAMP-1002040

PATIENT
  Sex: Male
  Weight: 80 kg

DRUGS (8)
  1. NEULASTA [Suspect]
     Indication: NEUTROPENIA
     Dosage: 6 MG, QD
     Route: 058
     Dates: start: 20111012, end: 20111209
  2. TAMSULOSIN HCL [Concomitant]
     Indication: PRODUCT USED FOR UNKNOWN INDICATION
     Dosage: 0.4 MG 1-0-0-0
     Route: 065
  3. VORICONAZOLE [Concomitant]
     Indication: PRODUCT USED FOR UNKNOWN INDICATION
     Dosage: 200 MG 1-0-1-0
     Route: 065
  4. CAMPATH [Suspect]
     Indication: CHRONIC LYMPHOCYTIC LEUKAEMIA
     Dosage: 30 MG, QD
     Route: 058
     Dates: start: 20111012, end: 20111209
  5. COTRIM [Concomitant]
     Indication: PRODUCT USED FOR UNKNOWN INDICATION
     Dosage: 960 MG 1-0-0-0
     Route: 065
  6. VALCYTE [Concomitant]
     Indication: PRODUCT USED FOR UNKNOWN INDICATION
     Dosage: 450 MG 1-0-1-0
     Route: 065
  7. DEXAMETHASONE [Suspect]
     Indication: CHRONIC LYMPHOCYTIC LEUKAEMIA
     Dosage: 40 MG, QD
     Route: 048
     Dates: start: 20111012, end: 20111130
  8. METOCLOPRAMIDE [Concomitant]
     Indication: PRODUCT USED FOR UNKNOWN INDICATION
     Dosage: MCP 30 1-1-1
     Route: 065

REACTIONS (6)
  - PYREXIA [None]
  - NAUSEA [None]
  - GENERAL PHYSICAL HEALTH DETERIORATION [None]
  - DEHYDRATION [None]
  - VOMITING [None]
  - DIARRHOEA [None]
